FAERS Safety Report 13532940 (Version 1)
Quarter: 2017Q2

REPORT INFORMATION
  Report Type: Spontaneous
  Country: US (occurrence: US)
  Receive Date: 20170510
  Receipt Date: 20170510
  Transmission Date: 20170830
  Serious: Yes (Other)
  Sender: FDA-Public Use
  Company Number: US-PFIZER INC-2017201649

PATIENT
  Sex: Female

DRUGS (1)
  1. XELJANZ XR [Suspect]
     Active Substance: TOFACITINIB CITRATE
     Dosage: UNK

REACTIONS (6)
  - Low density lipoprotein increased [Unknown]
  - Blood cholesterol increased [Unknown]
  - Red blood cell sedimentation rate increased [Unknown]
  - Anti-cyclic citrullinated peptide antibody positive [Unknown]
  - Platelet count increased [Unknown]
  - Rheumatoid factor increased [Unknown]
